FAERS Safety Report 10706786 (Version 1)
Quarter: 2015Q1

REPORT INFORMATION
  Report Type: Spontaneous
  Country: US (occurrence: None)
  Receive Date: 20150109
  Receipt Date: 20150109
  Transmission Date: 20150721
  Serious: Yes (Disabling)
  Sender: FDA-Public Use
  Company Number: None

PATIENT
  Age: 27 Year
  Sex: Male
  Weight: 68 kg

DRUGS (1)
  1. PROPECIA [Suspect]
     Active Substance: FINASTERIDE
     Indication: ALOPECIA
     Dosage: 1 PILL
     Route: 048
     Dates: start: 20140815, end: 20140915

REACTIONS (7)
  - Testicular pain [None]
  - Penis disorder [None]
  - Penile pain [None]
  - Dry skin [None]
  - Penile size reduced [None]
  - Peyronie^s disease [None]
  - Penile vascular disorder [None]

NARRATIVE: CASE EVENT DATE: 20140815
